FAERS Safety Report 6569188-0 (Version None)
Quarter: 2010Q1

REPORT INFORMATION
  Report Type: 
  Country: None (occurrence: None)
  Receive Date: 20100203
  Receipt Date: 20100126
  Transmission Date: 20100710
  Serious: Yes (Hospitalization)
  Sender: FDA-Public Use
  Company Number: JP-ROCHE-610288

PATIENT
  Sex: Female
  Weight: 42.2 kg

DRUGS (29)
  1. TOCILIZUMAB [Suspect]
     Indication: RHEUMATOID ARTHRITIS
     Route: 041
     Dates: start: 20080627, end: 20080627
  2. TOCILIZUMAB [Suspect]
     Route: 041
     Dates: start: 20080725, end: 20080725
  3. TOCILIZUMAB [Suspect]
     Route: 041
     Dates: start: 20080822, end: 20080822
  4. TOCILIZUMAB [Suspect]
     Route: 041
     Dates: start: 20080917, end: 20080917
  5. TOCILIZUMAB [Suspect]
     Route: 041
     Dates: start: 20081030, end: 20081030
  6. TOCILIZUMAB [Suspect]
     Route: 041
     Dates: start: 20081127, end: 20081127
  7. TOCILIZUMAB [Suspect]
     Route: 041
     Dates: start: 20081225, end: 20081225
  8. TOCILIZUMAB [Suspect]
     Route: 041
     Dates: start: 20090121
  9. RHEUMATREX [Concomitant]
     Route: 048
     Dates: end: 20080423
  10. PROGRAF [Concomitant]
     Dosage: DRUG REPORTED: PROGRAF (TACROLIMUS HYDRATE)
     Route: 048
     Dates: end: 20080409
  11. MEDROL [Concomitant]
     Route: 048
     Dates: end: 20080522
  12. MEDROL [Concomitant]
     Route: 048
     Dates: start: 20080523, end: 20080525
  13. MEDROL [Concomitant]
     Route: 048
     Dates: start: 20080526, end: 20080713
  14. MEDROL [Concomitant]
     Route: 048
     Dates: start: 20080714, end: 20080801
  15. MEDROL [Concomitant]
     Route: 048
     Dates: start: 20080802, end: 20081029
  16. MEDROL [Concomitant]
     Route: 048
     Dates: start: 20081030, end: 20081127
  17. MEDROL [Concomitant]
     Route: 048
     Dates: start: 20081128
  18. METALCAPTASE [Concomitant]
     Route: 048
     Dates: start: 20080409, end: 20080522
  19. METALCAPTASE [Concomitant]
     Route: 048
     Dates: start: 20080523, end: 20080719
  20. METALCAPTASE [Concomitant]
     Route: 048
     Dates: start: 20080720
  21. TASUOMIN [Concomitant]
     Dosage: DRUG REPORTED: TASUOMIN (TAMOXIFEN CITRATE)
     Route: 048
  22. PYDOXAL [Concomitant]
     Route: 048
  23. PARIET [Concomitant]
     Dosage: DRUG REPORTED: PARIET (SODIUM RABEPRAZOLE)
     Route: 048
  24. SELBEX [Concomitant]
     Dosage: FORM: ORAL FORMULATION NOS
     Route: 048
  25. ALENDRONATE SODIUM [Concomitant]
     Dosage: DRUG REPORTED: FOSAMAC 5 MG(ALENDRONATE SODIUM HYDRATE)
     Route: 048
  26. BEZAFIBRATE [Concomitant]
     Dosage: DRUG REPORTED: BEZATATE (BEZAFIBRATE)
     Route: 048
  27. VOLTAREN [Concomitant]
     Route: 048
  28. LOXONIN [Concomitant]
     Dosage: FORM: ORAL FORMAULATION NOS
     Route: 048
     Dates: end: 20080120
  29. STARSIS [Concomitant]
     Route: 048

REACTIONS (5)
  - BRONCHITIS [None]
  - DIZZINESS [None]
  - HYPERTRIGLYCERIDAEMIA [None]
  - HYPOAESTHESIA [None]
  - SUBDURAL HAEMATOMA [None]
